FAERS Safety Report 5823086-6 (Version None)
Quarter: 2008Q3

REPORT INFORMATION
  Report Type: 
  Country: None (occurrence: None)
  Receive Date: 20080725
  Receipt Date: 20070626
  Transmission Date: 20090109
  Serious: No
  Sender: FDA-Public Use
  Company Number: US-AMGEN-KDL231503

PATIENT
  Sex: Female

DRUGS (8)
  1. PROCRIT [Suspect]
     Indication: ANAEMIA
     Route: 058
     Dates: start: 20070621
  2. PEPCID [Concomitant]
  3. COUMADIN [Concomitant]
  4. NITRO-DUR [Concomitant]
     Route: 062
  5. LOPRESSOR [Concomitant]
  6. NORVASC [Concomitant]
  7. GLUCOTROL [Concomitant]
  8. ZOCOR [Concomitant]

REACTIONS (3)
  - DYSPEPSIA [None]
  - ERUCTATION [None]
  - FATIGUE [None]
